FAERS Safety Report 7490294-0 (Version None)
Quarter: 2011Q2

REPORT INFORMATION
  Report Type: 
  Country: None (occurrence: None)
  Receive Date: 20110519
  Receipt Date: 20100924
  Transmission Date: 20111010
  Serious: Yes (Other)
  Sender: FDA-Public Use
  Company Number: US-BRISTOL-MYERS SQUIBB COMPANY-15266273

PATIENT
  Sex: Female

DRUGS (1)
  1. BARACLUDE [Suspect]
     Route: 048
     Dates: start: 20080701

REACTIONS (1)
  - DRUG SPECIFIC ANTIBODY PRESENT [None]
